FAERS Safety Report 22331573 (Version 1)
Quarter: 2023Q2

REPORT INFORMATION
  Report Type: Spontaneous
  Country: US (occurrence: None)
  Receive Date: 20230516
  Receipt Date: 20230516
  Transmission Date: 20230722
  Serious: No
  Sender: FDA-Public Use
  Company Number: None

PATIENT
  Age: 27 Year
  Sex: Female
  Weight: 97.65 kg

DRUGS (12)
  1. CYANOCOBALAMIN\SEMAGLUTIDE [Suspect]
     Active Substance: CYANOCOBALAMIN\SEMAGLUTIDE
     Indication: Weight decreased
     Dosage: FREQUENCY : WEEKLY;?
     Route: 058
     Dates: start: 20230301, end: 20230512
  2. BACLOFEN [Concomitant]
     Active Substance: BACLOFEN
  3. BUPROPION [Concomitant]
     Active Substance: BUPROPION
  4. GABAPENTIN [Concomitant]
     Active Substance: GABAPENTIN
  5. MEMANTINE [Concomitant]
     Active Substance: MEMANTINE
  6. METOPROLOL [Concomitant]
     Active Substance: METOPROLOL
  7. NEXPLANON [Concomitant]
     Active Substance: ETONOGESTREL
  8. ONDANSETRON [Concomitant]
     Active Substance: ONDANSETRON
  9. SEMAGLUTIDE [Concomitant]
     Active Substance: SEMAGLUTIDE
  10. SOLRIAMFETOL [Concomitant]
     Active Substance: SOLRIAMFETOL
  11. VENLAFAXINE [Concomitant]
     Active Substance: VENLAFAXINE HYDROCHLORIDE
  12. FOLIC ACID [Concomitant]
     Active Substance: FOLIC ACID

REACTIONS (2)
  - Product prescribing error [None]
  - Intercepted product prescribing error [None]

NARRATIVE: CASE EVENT DATE: 20230512
